FAERS Safety Report 16929259 (Version 1)
Quarter: 2019Q4

REPORT INFORMATION
  Report Type: Spontaneous
  Country: US (occurrence: US)
  Receive Date: 20191017
  Receipt Date: 20191017
  Transmission Date: 20200122
  Serious: Yes (Other)
  Sender: FDA-Public Use
  Company Number: NVSC2019US001154

PATIENT
  Sex: Female

DRUGS (2)
  1. ENBREL [Suspect]
     Active Substance: ETANERCEPT
     Indication: PRODUCT USED FOR UNKNOWN INDICATION
     Dosage: UNK
     Route: 065
  2. PREDNISONE TABLETS USP [Suspect]
     Active Substance: PREDNISONE
     Indication: PRODUCT USED FOR UNKNOWN INDICATION
     Dosage: UNK
     Route: 065

REACTIONS (10)
  - Cardiac failure [Unknown]
  - Thrombosis [Unknown]
  - Diarrhoea [Unknown]
  - Tumour necrosis factor receptor-associated periodic syndrome [Unknown]
  - Constipation [Unknown]
  - Coma [Unknown]
  - Respiratory failure [Unknown]
  - Dry mouth [Unknown]
  - Ulcer [Unknown]
  - Renal failure [Unknown]
